FAERS Safety Report 4349815-9 (Version None)
Quarter: 2004Q2

REPORT INFORMATION
  Report Type: 
  Country: None (occurrence: None)
  Receive Date: 20040426
  Receipt Date: 20040419
  Transmission Date: 20050107
  Serious: Yes (Hospitalization)
  Sender: FDA-Public Use
  Company Number: KII-2002-0008102

PATIENT
  Age: 42 Year
  Sex: Male

DRUGS (2)
  1. MORPHINE SULFATE [Suspect]
  2. VICODIN ES [Suspect]

REACTIONS (1)
  - HEPATIC FAILURE [None]
